FAERS Safety Report 15607679 (Version 1)
Quarter: 2018Q4

REPORT INFORMATION
  Report Type: Spontaneous
  Country: FR (occurrence: FR)
  Receive Date: 20181112
  Receipt Date: 20181112
  Transmission Date: 20190205
  Serious: Yes (Other)
  Sender: FDA-Public Use
  Company Number: FR-JNJFOC-20181102942

PATIENT
  Age: 40 Year
  Sex: Male

DRUGS (10)
  1. SINGULAIR [Concomitant]
     Active Substance: MONTELUKAST SODIUM
     Route: 065
  2. IMETH [Concomitant]
     Active Substance: METHOTREXATE SODIUM
     Route: 065
  3. AERIUS (DESLORATADINE) [Concomitant]
     Active Substance: DESLORATADINE
     Route: 065
  4. SPECIAFOLDINE [Concomitant]
     Active Substance: FOLIC ACID
     Route: 065
  5. NASONEX [Concomitant]
     Active Substance: MOMETASONE FUROATE
     Route: 065
  6. GABAPENTINE [Concomitant]
     Active Substance: GABAPENTIN
     Route: 065
  7. TRAMADOL. [Concomitant]
     Active Substance: TRAMADOL
     Route: 065
  8. REMICADE [Suspect]
     Active Substance: INFLIXIMAB
     Indication: RHEUMATOID ARTHRITIS
     Route: 042
     Dates: start: 20110801, end: 20120104
  9. FORADIL [Concomitant]
     Active Substance: FORMOTEROL FUMARATE
     Route: 065
  10. NOCTAMIDE [Concomitant]
     Active Substance: LORMETAZEPAM
     Route: 065

REACTIONS (2)
  - Upper respiratory tract infection [Recovered/Resolved]
  - Asthma [Recovered/Resolved]

NARRATIVE: CASE EVENT DATE: 2011
